FAERS Safety Report 9416849 (Version 1)
Quarter: 2013Q3

REPORT INFORMATION
  Report Type: Spontaneous
  Country: FR (occurrence: FR)
  Receive Date: 20130724
  Receipt Date: 20130724
  Transmission Date: 20140515
  Serious: Yes (Other)
  Sender: FDA-Public Use
  Company Number: FR-JNJFOC-20130707736

PATIENT
  Sex: Male

DRUGS (3)
  1. ABIRATERONE ACETATE [Suspect]
     Indication: PROSTATE CANCER METASTATIC
     Route: 048
  2. CABAZITAXEL [Suspect]
     Indication: PROSTATE CANCER METASTATIC
     Route: 042
  3. PREDNISONE [Suspect]
     Indication: PROSTATE CANCER METASTATIC
     Route: 065

REACTIONS (8)
  - Neutropenia [Unknown]
  - Asthenia [Unknown]
  - Back pain [Unknown]
  - Nausea [Unknown]
  - Constipation [Unknown]
  - Anaemia [Unknown]
  - Decreased appetite [Unknown]
  - Fatigue [Unknown]
